FAERS Safety Report 5056014-4 (Version None)
Quarter: 2006Q3

REPORT INFORMATION
  Report Type: 
  Country: None (occurrence: None)
  Receive Date: 20060720
  Receipt Date: 20060710
  Transmission Date: 20061208
  Serious: Yes (Other)
  Sender: FDA-Public Use
  Company Number: 2006PK01519

PATIENT
  Age: 23802 Day
  Sex: Male
  Weight: 100 kg

DRUGS (54)
  1. MERONEM [Suspect]
     Route: 042
     Dates: start: 20020224, end: 20020227
  2. DIFLUCANE [Suspect]
     Route: 048
     Dates: start: 20020213, end: 20020227
  3. GENTAMICIN [Suspect]
     Route: 042
     Dates: start: 20020207, end: 20020209
  4. GENTAMICIN [Suspect]
     Route: 042
     Dates: start: 20020218, end: 20020226
  5. AMBROXOL [Concomitant]
     Route: 042
     Dates: start: 20020130, end: 20020227
  6. VITAMIN B1/B6 [Concomitant]
     Route: 042
     Dates: end: 20020227
  7. ROCEPHIN [Concomitant]
     Route: 042
     Dates: end: 20020206
  8. OMEPRAZOLE [Concomitant]
     Route: 042
     Dates: end: 20020210
  9. FRAXIPARIN [Concomitant]
     Route: 058
     Dates: end: 20020216
  10. FRAXIPARIN [Concomitant]
     Route: 058
     Dates: start: 20020217, end: 20020219
  11. NORCURON [Concomitant]
     Route: 042
     Dates: end: 20020203
  12. NORCURON [Concomitant]
     Route: 042
     Dates: start: 20020204, end: 20020227
  13. DORMICUM [Concomitant]
     Route: 042
     Dates: end: 20020204
  14. DORMICUM [Concomitant]
     Dosage: 15-20 MG/HR
     Route: 042
     Dates: end: 20020211
  15. SUFENTA [Concomitant]
     Dosage: 6-7 ML/HR
     Route: 042
     Dates: end: 20020227
  16. KETANEST [Concomitant]
     Dosage: 4-11 ML/HR
     Route: 042
     Dates: end: 20020211
  17. POTASSIUM CHLORIDE [Concomitant]
     Dosage: 0.2-1.0 ML/HR
     Route: 042
     Dates: end: 20020227
  18. CEBION [Concomitant]
     Route: 042
     Dates: end: 20020227
  19. HALDOL [Concomitant]
     Route: 042
     Dates: end: 20020203
  20. ALDACTONE [Concomitant]
     Route: 048
     Dates: end: 20020221
  21. TORSEMIDE [Concomitant]
     Route: 048
     Dates: end: 20020131
  22. NEBILET [Concomitant]
     Route: 048
     Dates: end: 20020131
  23. AKINETON [Concomitant]
     Route: 048
     Dates: end: 20020131
  24. DELIX [Concomitant]
     Route: 048
     Dates: end: 20020131
  25. DIPIPERON [Concomitant]
     Route: 048
     Dates: end: 20020131
  26. HEPA MERZ [Concomitant]
     Route: 048
     Dates: end: 20020131
  27. AMOZENT/ATROVENT [Concomitant]
     Route: 055
     Dates: end: 20020131
  28. SALBULAIR [Concomitant]
     Route: 042
     Dates: end: 20020211
  29. BRONCHOPARAT [Concomitant]
     Dosage: 2 ML/HR
     Route: 042
     Dates: end: 20020218
  30. AMINO ACIDS WITH FAT [Concomitant]
     Dosage: 6.3-9.4 ML/HR
     Route: 042
     Dates: end: 20020218
  31. FURESIS [Concomitant]
     Dosage: 10-60 MG/DAY
     Route: 042
     Dates: end: 20020211
  32. NOREPINEPHRINE BITARTRATE [Concomitant]
     Dosage: 1.0-2.4 ML/HR
     Route: 042
     Dates: start: 20020202, end: 20020204
  33. PROPOFOL [Concomitant]
     Dosage: 400-800 MG/DAY
     Route: 042
     Dates: start: 20020203, end: 20020227
  34. LACTULOSE [Concomitant]
     Route: 048
     Dates: start: 20020202, end: 20020227
  35. CERNEVIT-12 [Concomitant]
     Route: 042
     Dates: start: 20020202, end: 20020227
  36. RANITIDINE HCL [Concomitant]
     Route: 042
     Dates: start: 20020206, end: 20020227
  37. CIPROBAY [Concomitant]
     Route: 048
     Dates: start: 20020208, end: 20020218
  38. CIPROBAY [Concomitant]
     Route: 048
     Dates: start: 20020219, end: 20020222
  39. ERYTHROCIN [Concomitant]
     Route: 042
     Dates: start: 20020207, end: 20020217
  40. FENISTIL [Concomitant]
     Route: 042
     Dates: start: 20020207, end: 20020227
  41. ACTRAPID [Concomitant]
     Dosage: 8-24 ML/DAY
     Route: 058
     Dates: start: 20020210, end: 20020227
  42. ACTRAPID [Concomitant]
     Dosage: 8 ML/HR
     Route: 042
     Dates: start: 20020210, end: 20020227
  43. CLONIDIN [Concomitant]
     Route: 042
     Dates: start: 20020211, end: 20020212
  44. FORTUM [Concomitant]
     Route: 042
     Dates: start: 20020218, end: 20020218
  45. CORDAREX [Concomitant]
     Dosage: 2.1-4.2 ML/HR
     Route: 042
     Dates: start: 20020218, end: 20020218
  46. VANCOMYCIN [Concomitant]
     Route: 042
     Dates: start: 20020218, end: 20020218
  47. AMINOMEL NEPHRO [Concomitant]
     Dosage: 44-46 ML/HR
     Route: 042
     Dates: start: 20020217, end: 20020227
  48. GLUCOSE [Concomitant]
     Route: 042
     Dates: start: 20020220, end: 20020227
  49. NEXIUM [Concomitant]
     Route: 048
     Dates: start: 20020217, end: 20020227
  50. HEPARIN [Concomitant]
     Route: 042
     Dates: start: 20020220, end: 20020227
  51. SALOFALK [Concomitant]
     Route: 048
     Dates: start: 20020221, end: 20020227
  52. NOVAMIN [Concomitant]
     Route: 042
     Dates: start: 20020217, end: 20020220
  53. NOVAMIN [Concomitant]
     Route: 042
     Dates: start: 20020221, end: 20020227
  54. MELNEURIN [Concomitant]
     Route: 048
     Dates: start: 20020224, end: 20020227

REACTIONS (1)
  - AUTOIMMUNE THROMBOCYTOPENIA [None]
